FAERS Safety Report 6600014-7 (Version None)
Quarter: 2010Q1

REPORT INFORMATION
  Report Type: 
  Country: None (occurrence: None)
  Receive Date: 20100217
  Receipt Date: 20100203
  Transmission Date: 20100710
  Serious: Yes (Hospitalization)
  Sender: FDA-Public Use
  Company Number: A-NJ2009-27139

PATIENT
  Age: 63 Year
  Sex: Female
  Weight: 126.1 kg

DRUGS (17)
  1. TRACLEER [Suspect]
     Indication: PULMONARY ARTERIAL HYPERTENSION
     Dosage: 125 MG, BID, ORAL
     Route: 048
     Dates: start: 20081015
  2. VENTAVIS [Concomitant]
  3. OXYGEN (OXYGEN) [Concomitant]
  4. LEVOTHYROXINE SODIUM [Concomitant]
  5. SIMVASTATIN [Concomitant]
  6. CARVEDILOL [Concomitant]
  7. ASPIRIN [Concomitant]
  8. CALCIUM ACETATE (CALCIUM ACETATE) [Concomitant]
  9. HYDROXYCHLOROQUINE SULFATE [Concomitant]
  10. NEXIUM IV [Concomitant]
  11. PREDNISONE TAB [Concomitant]
  12. ZOLEDRONIC ACID [Concomitant]
  13. BUMEX [Concomitant]
  14. VITAMIN D [Concomitant]
  15. PROCARDIA XL [Concomitant]
  16. DIATX (FOLIC ACID, CYANOCOBALAMIN, PYRIDOXINE) [Concomitant]
  17. RANITIDINE HYDROCHLORIDE [Concomitant]

REACTIONS (12)
  - ABASIA [None]
  - ANAEMIA [None]
  - CARDIAC DISORDER [None]
  - COLLAGEN-VASCULAR DISEASE [None]
  - CONDITION AGGRAVATED [None]
  - DYSPNOEA EXERTIONAL [None]
  - GAIT DISTURBANCE [None]
  - HYPOXIA [None]
  - LEFT VENTRICULAR FAILURE [None]
  - NEUROPATHY PERIPHERAL [None]
  - PERICARDIAL EFFUSION [None]
  - SWELLING [None]
